FAERS Safety Report 6715747-1 (Version None)
Quarter: 2010Q2

REPORT INFORMATION
  Report Type: 
  Country: None (occurrence: None)
  Receive Date: 20100507
  Receipt Date: 20100426
  Transmission Date: 20101027
  Serious: Yes (Other)
  Sender: FDA-Public Use
  Company Number: ES-JNJFOC-20100407874

PATIENT
  Age: 47 Year
  Sex: Male

DRUGS (2)
  1. REMICADE [Suspect]
     Indication: POLYARTHRITIS
     Route: 042
  2. LEFLUNOMIDE [Concomitant]
     Indication: POLYARTHRITIS

REACTIONS (2)
  - DRUG EFFECT DECREASED [None]
  - ERYTHRODERMIC PSORIASIS [None]
